FAERS Safety Report 22015198 (Version 2)
Quarter: 2023Q1

REPORT INFORMATION
  Report Type: Spontaneous
  Country: US (occurrence: US)
  Receive Date: 20230221
  Receipt Date: 20230301
  Transmission Date: 20230417
  Serious: Yes (Death)
  Sender: FDA-Public Use
  Company Number: US-PFIZER INC-202300071966

PATIENT
  Age: 45 Year
  Sex: Male
  Weight: 81.633 kg

DRUGS (3)
  1. EPINEPHRINE [Suspect]
     Active Substance: EPINEPHRINE
     Dosage: UNK (FIRST FOUR TIMES THEY GAVE HIM 1 MILLIGRAM OF EPINEPHRINE 10000/THEN 10 MICROGRAM OF EPI (EPINE
     Route: 042
  2. EPINEPHRINE [Suspect]
     Active Substance: EPINEPHRINE
     Dosage: 1MG OF EPINEPHRINE IN 1000 ADMINISTERED VIA INTRAOSSEOUS
     Route: 017
  3. INSULIN NOS [Concomitant]
     Active Substance: INSULIN NOS
     Dosage: UNK

REACTIONS (2)
  - Cardiac arrest [Fatal]
  - Off label use [Unknown]
